FAERS Safety Report 5329004-1 (Version None)
Quarter: 2007Q2

REPORT INFORMATION
  Report Type: 
  Country: None (occurrence: None)
  Receive Date: 20070518
  Receipt Date: 20070514
  Transmission Date: 20071010
  Serious: Yes (Hospitalization)
  Sender: FDA-Public Use
  Company Number: AUWYE647315MAY07

PATIENT
  Age: 44 Year
  Sex: Male

DRUGS (3)
  1. EFFEXOR XR [Suspect]
     Indication: DEPRESSION
     Route: 048
  2. EFFEXOR XR [Suspect]
     Route: 048
  3. EFFEXOR XR [Suspect]
     Route: 048

REACTIONS (7)
  - ABDOMINAL PAIN [None]
  - AGITATION [None]
  - CONFUSIONAL STATE [None]
  - DIZZINESS [None]
  - DYSPEPSIA [None]
  - GASTRIC DISORDER [None]
  - MYALGIA [None]
